FAERS Safety Report 13959958 (Version 2)
Quarter: 2017Q4

REPORT INFORMATION
  Report Type: Report from Study
  Country: None (occurrence: CA)
  Receive Date: 20170911
  Receipt Date: 20171027
  Transmission Date: 20180320
  Serious: Yes (Other)
  Sender: FDA-Public Use
  Company Number: CA-ABBVIE-17K-028-2097054-00

PATIENT
  Sex: Female

DRUGS (2)
  1. HUMIRA [Suspect]
     Active Substance: ADALIMUMAB
     Indication: CROHN^S DISEASE
     Route: 058
     Dates: start: 20090420
  2. HUMIRA [Suspect]
     Active Substance: ADALIMUMAB
     Route: 058
     Dates: start: 201609

REACTIONS (4)
  - Migraine [Not Recovered/Not Resolved]
  - Ileocolectomy [Unknown]
  - Headache [Not Recovered/Not Resolved]
  - Postoperative abscess [Unknown]

NARRATIVE: CASE EVENT DATE: 2016
